FAERS Safety Report 17318279 (Version 3)
Quarter: 2020Q1

REPORT INFORMATION
  Report Type: Report from Study
  Country: GB (occurrence: GB)
  Receive Date: 20200124
  Receipt Date: 20200210
  Transmission Date: 20200409
  Serious: Yes (Other)
  Sender: FDA-Public Use
  Company Number: GB-PFIZER INC-2020017250

PATIENT

DRUGS (31)
  1. METOCLOPRAMIDE. [Concomitant]
     Active Substance: METOCLOPRAMIDE
     Indication: ANTIEMETIC SUPPORTIVE CARE
     Dosage: 10 MG, 3X/DAY
     Dates: start: 20191225, end: 20200106
  2. ONDANSETRON [Concomitant]
     Active Substance: ONDANSETRON
     Indication: ANTIEMETIC SUPPORTIVE CARE
     Dosage: 7 MG, 3X/DAY
     Dates: start: 20191224, end: 20191225
  3. MOVICOL [Concomitant]
     Active Substance: POLYETHYLENE GLYCOL 3350\POTASSIUM CHLORIDE\SODIUM BICARBONATE\SODIUM CHLORIDE
     Indication: CONSTIPATION
     Dosage: 1 SACHET
     Dates: start: 20191227, end: 20191229
  4. TAZOCIN [Concomitant]
     Active Substance: PIPERACILLIN SODIUM\TAZOBACTAM SODIUM
     Indication: FEBRILE NEUTROPENIA
     Dosage: 4.5 G, DAILY
     Dates: start: 20191218, end: 20191221
  5. ALLOPURINOL. [Concomitant]
     Active Substance: ALLOPURINOL
     Dosage: 130 MG, 3X/DAY
     Dates: start: 20191223, end: 20191229
  6. CASPOFUNGIN [Concomitant]
     Active Substance: CASPOFUNGIN
     Indication: RENAL IMPAIRMENT
     Dosage: 70 MG, UNK
     Dates: start: 20200101, end: 20200106
  7. MORPHINE SULFATE. [Concomitant]
     Active Substance: MORPHINE SULFATE
     Indication: PAIN
     Dosage: 15 MG, AS NEEDED
     Dates: start: 20191227
  8. DEXAMETHASONE. [Concomitant]
     Active Substance: DEXAMETHASONE
     Indication: ANTIEMETIC SUPPORTIVE CARE
     Dosage: 6 MG, 3X/DAY
     Dates: start: 20191224, end: 20191225
  9. MITOXANTRONE HCL [Suspect]
     Active Substance: MITOXANTRONE HYDROCHLORIDE
     Indication: ACUTE MYELOID LEUKAEMIA
     Dosage: 23 MG/M2 (92 MG), 1X/DAY (DRUG DOSAGE INTERVAL:10 DAYS)
     Route: 042
     Dates: start: 20191224, end: 20191227
  10. BUSCOPAN [Concomitant]
     Active Substance: BUTYLSCOPOLAMINE BROMIDE
     Indication: ABDOMINAL PAIN
     Dosage: 10 MG, 3X/DAY
     Dates: start: 20191227, end: 20200110
  11. LANSOPRAZOLE. [Concomitant]
     Active Substance: LANSOPRAZOLE
     Indication: DYSPEPSIA
     Dosage: 30 MG, DAILY
     Dates: start: 20191231, end: 20200105
  12. MEROPENEM. [Concomitant]
     Active Substance: MEROPENEM
     Indication: FEBRILE NEUTROPENIA
     Dosage: 1 G, 3X/DAY
     Dates: start: 20191229, end: 20200107
  13. TAZOCIN [Concomitant]
     Active Substance: PIPERACILLIN SODIUM\TAZOBACTAM SODIUM
     Indication: PYREXIA
     Dosage: 4.5 G, DAILY
     Dates: start: 20191227, end: 20191229
  14. HYDROCORTISONE. [Concomitant]
     Active Substance: HYDROCORTISONE
     Indication: HYPERSENSITIVITY
     Dosage: 100 MG, AS NEEDED
     Dates: start: 20191226, end: 20191229
  15. ONDANSETRON [Concomitant]
     Active Substance: ONDANSETRON
     Dosage: 4 MG, DAILY
     Dates: start: 20191225, end: 20191227
  16. ALBUMIN [Suspect]
     Active Substance: ALBUMIN HUMAN
     Indication: ACUTE MYELOID LEUKAEMIA
     Dosage: 40 G, UNK
     Route: 042
     Dates: start: 20200102, end: 20200102
  17. NORETHISTERONE [Concomitant]
     Active Substance: NORETHINDRONE
     Dosage: 10 MG, 2X/DAY
     Dates: start: 20191220, end: 20200106
  18. CYTARABINE. [Concomitant]
     Active Substance: CYTARABINE
     Indication: CHEMOTHERAPY
     Dosage: 190 MG, 2X/DAY
     Dates: start: 20191224, end: 20200102
  19. METHOTREXATE. [Concomitant]
     Active Substance: METHOTREXATE
     Indication: CHEMOTHERAPY
     Dosage: 12 MG, UNK (GIVEN AT DIAGNOSIS) (ORIGINALLY THOUGHT TO BE ALL)
     Route: 037
     Dates: start: 20191219, end: 20191219
  20. CHLORPHENIRAMINE [CHLORPHENAMINE] [Concomitant]
     Active Substance: CHLORPHENIRAMINE
     Indication: HYPERSENSITIVITY
     Dosage: 5 MG, DAILY (PRN)
     Dates: start: 20191218
  21. PARACETAMOL [Concomitant]
     Active Substance: ACETAMINOPHEN
     Indication: PYREXIA
     Dosage: 1 G, AS NEEDED
     Dates: start: 20191218
  22. LAXIDO [Concomitant]
     Active Substance: POLYETHYLENE GLYCOL 3350\POTASSIUM CHLORIDE\SODIUM BICARBONATE\SODIUM CHLORIDE
     Indication: CONSTIPATION
     Dosage: 1 DF, 2X/DAY (ONE SACHET)
     Dates: start: 20200101
  23. PARACETAMOL [Concomitant]
     Active Substance: ACETAMINOPHEN
     Indication: PAIN
  24. COTRIMOXAZOLE [Concomitant]
     Active Substance: SULFAMETHOXAZOLE\TRIMETHOPRIM
     Indication: PROPHYLAXIS
     Dosage: 480 MG, 2X/DAY (BD ON SATURDAY AND SUNDAYS)
     Dates: start: 20191221
  25. TRANEXAMIC ACID. [Concomitant]
     Active Substance: TRANEXAMIC ACID
     Indication: MENORRHAGIA
     Dosage: 1 G, DAILY
     Dates: start: 20191218, end: 20191223
  26. GEMTUZUMAB OZOGAMICIN [Suspect]
     Active Substance: GEMTUZUMAB OZOGAMICIN
     Indication: ACUTE MYELOID LEUKAEMIA
     Dosage: 5.0 MG,  (OTHER,DRUG DOSAGE INTERVAL- 4DAYS)
     Route: 042
     Dates: start: 20191227, end: 20191227
  27. CYTARABINE. [Concomitant]
     Active Substance: CYTARABINE
     Indication: CHEMOTHERAPY
     Dosage: 30 MG, UNK (GIVEN AT DIAGNOSIS)
     Route: 037
     Dates: start: 20191224, end: 20191224
  28. NIFEDIPINE. [Concomitant]
     Active Substance: NIFEDIPINE
     Indication: HYPERTENSION
     Dosage: 10 MG, AS NEEDED
     Dates: start: 20191226, end: 20191228
  29. ONDANSETRON [Concomitant]
     Active Substance: ONDANSETRON
     Dosage: 8 MG, DAILY
     Dates: start: 20191227
  30. AMBISONE [Concomitant]
     Active Substance: AMPHOTERICIN B
     Indication: PROPHYLAXIS
     Dosage: 70 MG, UNK (ONCE DAILY MON, WEDS, FRI)
     Dates: start: 20191218
  31. ALLOPURINOL. [Concomitant]
     Active Substance: ALLOPURINOL
     Dosage: 190 MG, 3X/DAY
     Dates: start: 20191218, end: 20191223

REACTIONS (4)
  - Hypoxia [Not Recovered/Not Resolved]
  - Mucosal inflammation [Not Recovered/Not Resolved]
  - Renal impairment [Not Recovered/Not Resolved]
  - Febrile neutropenia [Not Recovered/Not Resolved]

NARRATIVE: CASE EVENT DATE: 20200102
